FAERS Safety Report 25828689 (Version 1)
Quarter: 2025Q3

REPORT INFORMATION
  Report Type: Spontaneous
  Country: EU (occurrence: EU)
  Receive Date: 20250922
  Receipt Date: 20250922
  Transmission Date: 20251020
  Serious: Yes (Other)
  Sender: ABBVIE
  Company Number: EU-ABBVIE-6465587

PATIENT
  Sex: Female

DRUGS (1)
  1. MIRVETUXIMAB SORAVTANSINE [Suspect]
     Active Substance: MIRVETUXIMAB SORAVTANSINE
     Indication: Ovarian cancer
     Route: 042
     Dates: start: 20241113

REACTIONS (3)
  - Neoplasm progression [Unknown]
  - Off label use [Unknown]
  - Eye disorder [Unknown]
